FAERS Safety Report 24460382 (Version 1)
Quarter: 2024Q4

REPORT INFORMATION
  Report Type: Spontaneous
  Country: US (occurrence: None)
  Receive Date: 20241017
  Receipt Date: 20241017
  Transmission Date: 20250115
  Serious: Yes (unspecified)
  Sender: Public
  Company Number: None

PATIENT
  Age: 55 Year
  Sex: Male
  Weight: 63.5 kg

DRUGS (3)
  1. CHLORPROMAZINE HYDROCHLORIDE [Suspect]
     Active Substance: CHLORPROMAZINE HYDROCHLORIDE
     Indication: Hiccups
     Route: 042
  2. MORPHINE [Suspect]
     Active Substance: MORPHINE
     Dates: start: 20241013, end: 20241013
  3. NITROGLYCERIN [Concomitant]
     Active Substance: NITROGLYCERIN
     Dates: start: 20241013, end: 20241013

REACTIONS (4)
  - Hiccups [None]
  - Hypotension [None]
  - Mental status changes [None]
  - Drug hypersensitivity [None]

NARRATIVE: CASE EVENT DATE: 20241013
